FAERS Safety Report 5545328-7 (Version None)
Quarter: 2007Q4

REPORT INFORMATION
  Report Type: 
  Country: None (occurrence: None)
  Receive Date: 20071211
  Receipt Date: 20071206
  Transmission Date: 20080405
  Serious: Yes (Life-Threatening, Hospitalization)
  Sender: FDA-Public Use
  Company Number: FR-JNJFOC-20071201830

PATIENT
  Age: 42 Year
  Sex: Female

DRUGS (9)
  1. TAVANIC [Suspect]
     Indication: INFECTION PROPHYLAXIS
     Route: 065
  2. VFEND [Interacting]
     Indication: DRUG USE FOR UNKNOWN INDICATION
     Route: 048
  3. PROGRAF [Interacting]
     Route: 048
  4. PROGRAF [Interacting]
     Indication: CORONARY ARTERY BYPASS
     Route: 048
  5. CELLCEPT [Concomitant]
     Indication: CORONARY ARTERY BYPASS
     Route: 065
  6. SOLU-MEDROL [Concomitant]
     Route: 065
  7. ISUPREL [Concomitant]
     Route: 065
  8. LASIX [Concomitant]
     Route: 065
  9. MONICOR [Concomitant]
     Route: 065

REACTIONS (3)
  - DELIRIUM [None]
  - DRUG INTERACTION [None]
  - HALLUCINATION [None]
